FAERS Safety Report 5466669-8 (Version None)
Quarter: 2007Q3

REPORT INFORMATION
  Report Type: 
  Country: None (occurrence: None)
  Receive Date: 20070924
  Receipt Date: 20070924
  Transmission Date: 20080115
  Serious: No
  Sender: FDA-Public Use
  Company Number: None

PATIENT
  Age: 56 Year
  Sex: Male

DRUGS (9)
  1. DARUNAVIR [Suspect]
     Indication: HIV INFECTION
     Dosage: 600 MG PO BID
     Route: 048
     Dates: start: 20060901, end: 20061201
  2. EPZICOM [Suspect]
     Indication: HIV INFECTION
     Dosage: 300/600 MG PO DAILY
     Route: 048
     Dates: start: 20060901, end: 20061212
  3. VIDEX [Suspect]
     Indication: HIV INFECTION
     Dosage: 100 MG PO BID
     Route: 048
     Dates: start: 20060901, end: 20061212
  4. FLUCONAZOLE [Suspect]
     Indication: CANDIDIASIS
     Dosage: 100 MG PO DAILY
     Route: 048
     Dates: start: 20060906, end: 20061212
  5. BACTRIM [Concomitant]
  6. MEGACE [Concomitant]
  7. PLETAL [Concomitant]
  8. NAPROXAN [Concomitant]
  9. RITONAVIR [Concomitant]

REACTIONS (15)
  - ACIDOSIS [None]
  - ALANINE AMINOTRANSFERASE INCREASED [None]
  - ANOREXIA [None]
  - ASPARTATE AMINOTRANSFERASE INCREASED [None]
  - BLOOD BILIRUBIN INCREASED [None]
  - DYSGEUSIA [None]
  - FATIGUE [None]
  - HEPATIC FIBROSIS [None]
  - HEPATIC NECROSIS [None]
  - HEPATOCELLULAR DAMAGE [None]
  - HEPATOTOXICITY [None]
  - JAUNDICE [None]
  - LIVER DISORDER [None]
  - NAUSEA [None]
  - WEIGHT DECREASED [None]
